FAERS Safety Report 17564617 (Version 1)
Quarter: 2020Q1

REPORT INFORMATION
  Report Type: Spontaneous
  Country: US (occurrence: US)
  Receive Date: 20200320
  Receipt Date: 20200320
  Transmission Date: 20200409
  Serious: Yes (Other)
  Sender: FDA-Public Use
  Company Number: US-MIKART, LLC-2081811

PATIENT
  Age: 36 Year
  Sex: Male

DRUGS (5)
  1. HYDROCODONE BITARTRATE AND ACETAMINOPHEN [Suspect]
     Active Substance: ACETAMINOPHEN\HYDROCODONE BITARTRATE
     Route: 048
  2. UNSPECIFIED ILLEGAL SUBSTANCES [Concomitant]
  3. ALCOHOL. [Concomitant]
     Active Substance: ALCOHOL
  4. COCAINE [Concomitant]
     Active Substance: COCAINE
  5. FENTANYL. [Concomitant]
     Active Substance: FENTANYL

REACTIONS (9)
  - Accident [Unknown]
  - Visual impairment [Unknown]
  - Depression [Unknown]
  - Constipation [Unknown]
  - Malnutrition [Unknown]
  - Multiple injuries [Unknown]
  - Sexual dysfunction [Unknown]
  - Drug dependence [Unknown]
  - Drug abuse [Unknown]
